FAERS Safety Report 8185539-8 (Version None)
Quarter: 2012Q1

REPORT INFORMATION
  Report Type: 
  Country: None (occurrence: None)
  Receive Date: 20120305
  Receipt Date: 20120222
  Transmission Date: 20120608
  Serious: Yes (Hospitalization, Disabling, Other)
  Sender: FDA-Public Use
  Company Number: US-ELI_LILLY_AND_COMPANY-US201202001537

PATIENT
  Sex: Male
  Weight: 126.98 kg

DRUGS (33)
  1. HUMULIN N [Suspect]
     Indication: TYPE 2 DIABETES MELLITUS
     Dosage: 60 U, EACH EVENING
     Route: 058
     Dates: start: 20050101
  2. LANTUS [Concomitant]
     Dosage: 55 U, BID
  3. NYSTATIN [Concomitant]
     Dosage: UNK, QD
     Route: 061
  4. NEXIUM [Concomitant]
     Dosage: 40 MG, QD
  5. NORTRIPTYLINE HCL [Concomitant]
     Dosage: 25 MG, QD
  6. HUMULIN N [Suspect]
     Dosage: 60 U, EACH EVENING
     Route: 058
     Dates: start: 20050101
  7. OTH.DRUGS FOR OBSTRUC.AIRWAY DISEASES,INHALAN [Concomitant]
     Dosage: UNK
  8. RANITIDINE [Concomitant]
     Dosage: 150 MG, QD
  9. CITALOPRAM HYDROBROMIDE [Concomitant]
     Dosage: 10 MG, QD
  10. LIDODERM [Concomitant]
     Dosage: 1 DF, QD
     Route: 061
  11. ASPIRIN [Concomitant]
     Dosage: 325 MG, QD
  12. ADVAIR DISKUS 100/50 [Concomitant]
     Dosage: UNK, BID
     Route: 055
  13. ALLOPURINOL [Concomitant]
     Dosage: 100 MG, QD
  14. CARVEDILOL [Concomitant]
     Dosage: 6.25 MG, BID
  15. NOVOLOG [Concomitant]
     Dosage: 17 U, TID
     Route: 058
  16. TORSEMIDE [Concomitant]
     Dosage: 20 MG, QD
  17. PLAVIX [Concomitant]
     Dosage: 75 MG, QD
  18. CLARINEX [Concomitant]
     Dosage: 5 MG, QD
  19. LOVAZA [Concomitant]
     Dosage: UNK, QID
  20. NAFTIN [Concomitant]
     Dosage: 1 DF, QD
     Route: 061
  21. CRESTOR [Concomitant]
     Dosage: 10 MG, BID
  22. VITAMIN D [Concomitant]
     Dosage: 2000 U, BID
  23. NITROGLYCERIN SPRAY [Concomitant]
     Indication: CHEST PAIN
     Dosage: UNK, PRN
     Route: 060
  24. SYMLIN [Concomitant]
     Dosage: 120 UG, BID
     Route: 058
  25. CYANOCOBALAMIN [Concomitant]
     Indication: VITAMIN B12 DEFICIENCY
     Dosage: 1 ML, MONTHLY (1/M)
     Route: 058
  26. NIASPAN [Concomitant]
     Dosage: 500 MG, QD
  27. LYRICA [Concomitant]
     Dosage: 100 MG, TID
  28. TRICOR [Concomitant]
     Dosage: 145 MG, QD
  29. MIRALAX [Concomitant]
     Indication: CONSTIPATION
     Dosage: 17 G, QD
  30. FUROSEMIDE [Concomitant]
     Dosage: 20 MG, QD
  31. ATROVENT [Concomitant]
     Dosage: UNK, QID
  32. VENTOLIN                                /SCH/ [Concomitant]
     Dosage: 1 DF, EVERY 6 HRS
  33. AMLODIPINE [Concomitant]
     Dosage: 5 MG, QD

REACTIONS (17)
  - ASTHMA [None]
  - IMMUNE SYSTEM DISORDER [None]
  - PNEUMONIA [None]
  - FEAR [None]
  - DIVERTICULITIS [None]
  - GENERALISED OEDEMA [None]
  - HYPERKERATOSIS [None]
  - DIABETES MELLITUS INADEQUATE CONTROL [None]
  - CARDIAC FAILURE [None]
  - PULMONARY OEDEMA [None]
  - H1N1 INFLUENZA [None]
  - STAPHYLOCOCCAL INFECTION [None]
  - BLISTER [None]
  - EXTREMITY CONTRACTURE [None]
  - DYSPNOEA [None]
  - LIMB INJURY [None]
  - CONTUSION [None]
